FAERS Safety Report 5843813-1 (Version None)
Quarter: 2008Q3

REPORT INFORMATION
  Report Type: 
  Country: None (occurrence: None)
  Receive Date: 20080813
  Receipt Date: 20080801
  Transmission Date: 20090109
  Serious: Yes (Hospitalization)
  Sender: FDA-Public Use
  Company Number: PHEH2008US04632

PATIENT
  Sex: Female
  Weight: 51.701 kg

DRUGS (1)
  1. RECLAST [Suspect]
     Indication: OSTEOPOROSIS
     Dates: start: 20080502

REACTIONS (5)
  - BACK PAIN [None]
  - COUGH [None]
  - HEADACHE [None]
  - PAIN IN JAW [None]
  - PERIPHERAL NERVE NEUROSTIMULATION [None]
